FAERS Safety Report 5869200-8 (Version None)
Quarter: 2008Q3

REPORT INFORMATION
  Report Type: 
  Country: None (occurrence: None)
  Receive Date: 20080828
  Receipt Date: 20080818
  Transmission Date: 20090109
  Serious: Yes (Hospitalization)
  Sender: FDA-Public Use
  Company Number: 2007BI016456

PATIENT
  Age: 72 Year
  Sex: Female
  Weight: 87.9978 kg

DRUGS (1)
  1. AVONEX [Suspect]
     Indication: MULTIPLE SCLEROSIS
     Dosage: 30 UG;QW;IM
     Route: 030
     Dates: start: 19991201

REACTIONS (9)
  - CONDITION AGGRAVATED [None]
  - DIABETES MELLITUS [None]
  - DYSSTASIA [None]
  - LIPIDS INCREASED [None]
  - MUSCLE SPASTICITY [None]
  - PERIPHERAL VASCULAR DISORDER [None]
  - POOR PERIPHERAL CIRCULATION [None]
  - SKIN ULCER [None]
  - WOUND [None]
